FAERS Safety Report 18282817 (Version 3)
Quarter: 2020Q4

REPORT INFORMATION
  Report Type: Spontaneous
  Country: US (occurrence: US)
  Receive Date: 20200918
  Receipt Date: 20201110
  Transmission Date: 20210113
  Serious: Yes (Life-Threatening, Hospitalization, Other)
  Sender: FDA-Public Use
  Company Number: US-DRREDDYS-USA/USA/20/0126939

PATIENT
  Age: 5 Day
  Sex: Female
  Weight: 7.9 kg

DRUGS (3)
  1. VENLAFAXINE HYDROCHLORIDE. [Suspect]
     Active Substance: VENLAFAXINE HYDROCHLORIDE
     Indication: DEPRESSION
     Dosage: VIA BREAST MILK
     Route: 048
  2. VENLAFAXINE HYDROCHLORIDE. [Suspect]
     Active Substance: VENLAFAXINE HYDROCHLORIDE
     Dosage: INCREASED TO, APPROXIMATELY 2 MONTHS PRIOR TO DELIVERY.
     Route: 064
  3. VENLAFAXINE HYDROCHLORIDE. [Suspect]
     Active Substance: VENLAFAXINE HYDROCHLORIDE
     Route: 062

REACTIONS (6)
  - Drug withdrawal syndrome neonatal [Recovered/Resolved]
  - Weight decreased [Recovered/Resolved]
  - Hypothermia [Recovered/Resolved]
  - Exposure via breast milk [Recovered/Resolved]
  - Toxic encephalopathy [Recovered/Resolved]
  - Foetal exposure during pregnancy [Recovered/Resolved]
